FAERS Safety Report 25440366 (Version 1)
Quarter: 2025Q2

REPORT INFORMATION
  Report Type: Report from Study
  Country: GB (occurrence: GB)
  Receive Date: 20250616
  Receipt Date: 20250616
  Transmission Date: 20250716
  Serious: Yes (Other)
  Sender: NOVARTIS
  Company Number: GB-002147023-NVSC2024GB179940

PATIENT
  Age: 28 Year
  Sex: Male

DRUGS (2)
  1. KESIMPTA [Suspect]
     Active Substance: OFATUMUMAB
     Indication: Multiple sclerosis
     Dosage: 20 MG, QW (LOADING DOSES)
     Route: 058
     Dates: start: 20240906
  2. KESIMPTA [Suspect]
     Active Substance: OFATUMUMAB
     Indication: Relapsing-remitting multiple sclerosis
     Dosage: 20 MG, QMO
     Route: 058

REACTIONS (7)
  - Lower respiratory tract infection [Recovered/Resolved]
  - Productive cough [Recovering/Resolving]
  - Headache [Recovered/Resolved]
  - Pain in extremity [Recovered/Resolved]
  - Limb discomfort [Recovered/Resolved]
  - Dysgeusia [Recovered/Resolved]
  - Inappropriate schedule of product administration [Unknown]
